FAERS Safety Report 19437234 (Version 1)
Quarter: 2021Q2

REPORT INFORMATION
  Report Type: Spontaneous
  Country: US (occurrence: US)
  Receive Date: 20210618
  Receipt Date: 20210618
  Transmission Date: 20210717
  Serious: No
  Sender: FDA-Public Use
  Company Number: US-BIOHAVEN PHARMACEUTICALS-2021BHV00316

PATIENT
  Age: 64 Year
  Sex: Female
  Weight: 58.96 kg

DRUGS (6)
  1. NAPROSYN [Concomitant]
     Active Substance: NAPROXEN
     Dosage: UNK, AS NEEDED
  2. GENERIC CRESTOR [Concomitant]
     Active Substance: ROSUVASTATIN CALCIUM
  3. FIORICET [Concomitant]
     Active Substance: ACETAMINOPHEN\BUTALBITAL\CAFFEINE
     Dosage: UNK, AS NEEDED
  4. NURTEC ODT [Suspect]
     Active Substance: RIMEGEPANT SULFATE
     Indication: MIGRAINE
     Dosage: 75 MG, ONCE (ONE TABLET 4 DAYS IN A ROW)
     Route: 060
     Dates: start: 20210305
  5. ASPIRIN. [Concomitant]
     Active Substance: ASPIRIN
     Dosage: 81 MG, 1X/DAY AT BEDTIME
  6. NADOLOL. [Concomitant]
     Active Substance: NADOLOL

REACTIONS (6)
  - Dizziness [Recovered/Resolved]
  - Nausea [Recovered/Resolved]
  - Paraesthesia [Recovered/Resolved]
  - Feeling drunk [Recovered/Resolved]
  - Hypoaesthesia [Recovered/Resolved]
  - Illness [Recovered/Resolved]

NARRATIVE: CASE EVENT DATE: 20210305
